FAERS Safety Report 21270011 (Version 1)
Quarter: 2022Q3

REPORT INFORMATION
  Report Type: Spontaneous
  Country: CA (occurrence: CA)
  Receive Date: 20220830
  Receipt Date: 20220830
  Transmission Date: 20221027
  Serious: Yes (Hospitalization)
  Sender: FDA-Public Use
  Company Number: CA-VERTEX PHARMACEUTICALS-2022-001735

PATIENT
  Age: 43 Year
  Sex: Female

DRUGS (5)
  1. TRIKAFTA [Suspect]
     Active Substance: ELEXACAFTOR\IVACAFTOR\TEZACAFTOR
     Indication: Cystic fibrosis
     Dosage: 2 TABS AM AND 1 TAB PM
     Route: 048
     Dates: start: 20220115, end: 20220123
  2. TRIKAFTA [Suspect]
     Active Substance: ELEXACAFTOR\IVACAFTOR\TEZACAFTOR
     Dosage: ONLY MORNING TABLETS
     Route: 048
     Dates: start: 20220214, end: 20220215
  3. TRIKAFTA [Suspect]
     Active Substance: ELEXACAFTOR\IVACAFTOR\TEZACAFTOR
     Dosage: ONLY MORNING TABLETS
     Route: 048
     Dates: start: 20220317, end: 2022
  4. TRIKAFTA [Suspect]
     Active Substance: ELEXACAFTOR\IVACAFTOR\TEZACAFTOR
     Dosage: AM AND PM DOSE
     Route: 048
     Dates: start: 202204, end: 202204
  5. TRIKAFTA [Suspect]
     Active Substance: ELEXACAFTOR\IVACAFTOR\TEZACAFTOR
     Dosage: 2 TABS AM
     Route: 048
     Dates: start: 202204

REACTIONS (20)
  - Rash erythematous [Recovered/Resolved]
  - Rash pruritic [Recovering/Resolving]
  - Productive cough [Recovering/Resolving]
  - Burning sensation [Unknown]
  - Hypersensitivity [Recovering/Resolving]
  - Dyspnoea [Recovering/Resolving]
  - Chest pain [Recovered/Resolved]
  - Tremor [Recovering/Resolving]
  - Pyrexia [Recovering/Resolving]
  - Heart rate increased [Recovering/Resolving]
  - White blood cell count increased [Recovering/Resolving]
  - Paraesthesia [Not Recovered/Not Resolved]
  - Respiratory tract irritation [Recovered/Resolved]
  - Pneumonia [Unknown]
  - Infection [Recovered/Resolved]
  - Sinus disorder [Not Recovered/Not Resolved]
  - Pain of skin [Not Recovered/Not Resolved]
  - COVID-19 [Unknown]
  - Feeling cold [Unknown]
  - Pruritus [Recovered/Resolved]

NARRATIVE: CASE EVENT DATE: 20220101
